FAERS Safety Report 5892052-7 (Version None)
Quarter: 2008Q3

REPORT INFORMATION
  Report Type: 
  Country: None (occurrence: None)
  Receive Date: 20080922
  Receipt Date: 20080919
  Transmission Date: 20090109
  Serious: Yes (Disabling)
  Sender: FDA-Public Use
  Company Number: US-ROXANE LABORATORIES, INC.-2008-RO-00061RO

PATIENT
  Sex: Female

DRUGS (8)
  1. DEXAMETHASONE [Suspect]
     Indication: INFLAMMATION
     Dosage: 12MG
     Dates: start: 20080913, end: 20080914
  2. LOVENOX [Concomitant]
  3. CLONAZEPAM [Concomitant]
  4. DIFLUCAN [Concomitant]
  5. MORPHINE [Concomitant]
     Indication: PAIN
  6. PROTONIX [Concomitant]
  7. MIRALAX [Concomitant]
  8. SENOKOT [Concomitant]

REACTIONS (2)
  - DRUG INEFFECTIVE [None]
  - PARALYSIS [None]
